FAERS Safety Report 13142378 (Version 1)
Quarter: 2017Q1

REPORT INFORMATION
  Report Type: Spontaneous
  Country: US (occurrence: US)
  Receive Date: 20170124
  Receipt Date: 20170124
  Transmission Date: 20170428
  Serious: Yes (Other)
  Sender: FDA-Public Use
  Company Number: US-SMITH AND NEPHEW, INC-2017SMT00033

PATIENT
  Sex: Female

DRUGS (1)
  1. REGRANEX [Suspect]
     Active Substance: BECAPLERMIN
     Indication: DIABETIC ULCER
     Dosage: UNK, 1X/DAY ON FOR 12 HOURS, OFF FOR 12 HOURS
     Dates: start: 2016, end: 20170110

REACTIONS (2)
  - Drug ineffective [Recovered/Resolved]
  - Gangrene [Unknown]

NARRATIVE: CASE EVENT DATE: 2016
